FAERS Safety Report 24529322 (Version 1)
Quarter: 2024Q4

REPORT INFORMATION
  Report Type: Spontaneous
  Country: US (occurrence: None)
  Receive Date: 20241020
  Receipt Date: 20241020
  Transmission Date: 20250114
  Serious: Yes (Other)
  Sender: Public
  Company Number: None

PATIENT
  Age: 55 Year
  Sex: Female
  Weight: 94.5 kg

DRUGS (2)
  1. REPATHA [Suspect]
     Active Substance: EVOLOCUMAB
     Indication: Blood cholesterol increased
     Dates: start: 20240921, end: 20241012
  2. VALSARTAN [Concomitant]
     Active Substance: VALSARTAN

REACTIONS (2)
  - Back pain [None]
  - Abdominal pain [None]

NARRATIVE: CASE EVENT DATE: 20241010
